FAERS Safety Report 7593662-1 (Version None)
Quarter: 2011Q3

REPORT INFORMATION
  Report Type: 
  Country: None (occurrence: None)
  Receive Date: 20110706
  Receipt Date: 20110701
  Transmission Date: 20111222
  Serious: Yes (Death, Hospitalization)
  Sender: FDA-Public Use
  Company Number: PHHY2011DE41101

PATIENT
  Sex: Female
  Weight: 83 kg

DRUGS (9)
  1. DIURETICS [Concomitant]
     Dosage: UNK
     Route: 048
     Dates: end: 20091020
  2. ALISKIREN [Suspect]
     Indication: HYPERTENSION
     Dosage: UNK
     Route: 048
     Dates: start: 20081209
  3. ACE INHIBITOR NOS [Concomitant]
     Dosage: UNK
     Route: 048
     Dates: end: 20091020
  4. NSAID'S [Concomitant]
     Dosage: UNK
  5. ANGIOTENSIN RECEPTOR BLOCKER OTHER AS VALSARTAN [Concomitant]
     Dosage: UNK
     Route: 048
     Dates: start: 20091020
  6. THIENOPYRIDINE [Concomitant]
  7. STATIN [Concomitant]
  8. ORAL ANTIDIABETICS [Concomitant]
  9. NITRATES [Concomitant]

REACTIONS (4)
  - ACUTE MYOCARDIAL INFARCTION [None]
  - BLOOD POTASSIUM INCREASED [None]
  - LEFT VENTRICULAR DYSFUNCTION [None]
  - VENTRICULAR FIBRILLATION [None]
